FAERS Safety Report 8952257 (Version 1)
Quarter: 2012Q4

REPORT INFORMATION
  Report Type: 
  Country: US (occurrence: US)
  Receive Date: 20121204
  Receipt Date: 20121204
  Transmission Date: 20130627
  Serious: No
  Sender: FDA-Public Use
  Company Number: US-009507513-1212USA000092

PATIENT
  Sex: Male

DRUGS (1)
  1. PROPECIA [Suspect]
     Indication: ALOPECIA
     Dosage: 1 mg, qd
     Route: 048
     Dates: start: 1997, end: 201207

REACTIONS (5)
  - Testicular pain [Recovered/Resolved]
  - Fibrosis [Not Recovered/Not Resolved]
  - Painful ejaculation [Recovered/Resolved]
  - Muscle spasms [Recovered/Resolved]
  - Alopecia [Unknown]
